FAERS Safety Report 14703975 (Version 3)
Quarter: 2018Q2

REPORT INFORMATION
  Report Type: Spontaneous
  Country: US (occurrence: US)
  Receive Date: 20180402
  Receipt Date: 20180514
  Transmission Date: 20180711
  Serious: Yes (Hospitalization)
  Sender: FDA-Public Use
  Company Number: US-VIIV HEALTHCARE LIMITED-US2018053927

PATIENT
  Age: 26 Year
  Sex: Male

DRUGS (2)
  1. KALETRA [Concomitant]
     Active Substance: LOPINAVIR\RITONAVIR
  2. ABACAVIR SULFATE + LAMIVUDINE + ZIDOVUDINE [Suspect]
     Active Substance: ABACAVIR SULFATE\LAMIVUDINE\ZIDOVUDINE
     Indication: HIV INFECTION
     Dosage: UNK
     Route: 048
     Dates: start: 2017

REACTIONS (12)
  - Condition aggravated [Not Recovered/Not Resolved]
  - Hallucination, auditory [Not Recovered/Not Resolved]
  - Thinking abnormal [Not Recovered/Not Resolved]
  - Vomiting [Unknown]
  - Treatment noncompliance [Unknown]
  - Confusional state [Not Recovered/Not Resolved]
  - Chromaturia [Unknown]
  - Aggression [Not Recovered/Not Resolved]
  - Suspiciousness [Not Recovered/Not Resolved]
  - Diarrhoea [Unknown]
  - Emotional distress [Unknown]
  - Paranoia [Not Recovered/Not Resolved]
